FAERS Safety Report 18606982 (Version 18)
Quarter: 2022Q2

REPORT INFORMATION
  Report Type: Report from Study
  Country: CL (occurrence: CL)
  Receive Date: 20201211
  Receipt Date: 20220425
  Transmission Date: 20220720
  Serious: Yes (Other)
  Sender: FDA-Public Use
  Company Number: NVSC2020CL321222

PATIENT
  Age: 39 Year
  Sex: Female

DRUGS (8)
  1. KISQALI [Suspect]
     Active Substance: RIBOCICLIB
     Indication: Hormone receptor positive breast cancer
     Dosage: 600 MG, QD
     Route: 048
     Dates: start: 20201104
  2. KISQALI [Suspect]
     Active Substance: RIBOCICLIB
     Indication: Breast cancer
  3. FULVESTRANT [Suspect]
     Active Substance: FULVESTRANT
     Indication: Product used for unknown indication
     Dosage: UNK
     Route: 065
  4. ZOLEDRONIC ACID [Suspect]
     Active Substance: ZOLEDRONIC ACID
     Indication: Bone deformity
     Dosage: UNK
     Route: 065
  5. CALCIUM [Concomitant]
     Active Substance: CALCIUM
     Indication: Product used for unknown indication
     Dosage: UNK
     Route: 065
  6. PHOSPHORUS [Concomitant]
     Active Substance: PHOSPHORUS
     Indication: Product used for unknown indication
     Dosage: UNK
     Route: 065
  7. IRON [Concomitant]
     Active Substance: IRON
     Indication: Product used for unknown indication
     Dosage: UNK
     Route: 065
  8. ZOPICLONE [Concomitant]
     Active Substance: ZOPICLONE
     Indication: Product used for unknown indication
     Dosage: UNK
     Route: 065

REACTIONS (39)
  - Myocardial infarction [Unknown]
  - Arrhythmia [Unknown]
  - Immunodeficiency [Unknown]
  - Neutrophil count decreased [Unknown]
  - Memory impairment [Unknown]
  - Malaise [Unknown]
  - Blood oestrogen abnormal [Unknown]
  - Tendonitis [Unknown]
  - Musculoskeletal chest pain [Recovered/Resolved]
  - Chest pain [Unknown]
  - Breast discomfort [Unknown]
  - Ventricular extrasystoles [Unknown]
  - Electrocardiogram abnormal [Unknown]
  - Red cell distribution width increased [Unknown]
  - Blood lactate dehydrogenase increased [Unknown]
  - Anisocytosis [Unknown]
  - Poikilocytosis [Unknown]
  - Elliptocytosis [Unknown]
  - Puncture site pain [Unknown]
  - Limb discomfort [Unknown]
  - Vitamin D decreased [Unknown]
  - Varicose vein [Unknown]
  - Red blood cell count decreased [Unknown]
  - Haematocrit decreased [Unknown]
  - Emotional distress [Unknown]
  - Electrocardiogram low voltage [Unknown]
  - Somnolence [Unknown]
  - Haemoglobin decreased [Unknown]
  - Gamma-glutamyltransferase increased [Unknown]
  - Vomiting [Unknown]
  - Lymphocyte count decreased [Unknown]
  - Nausea [Unknown]
  - Anaemia [Unknown]
  - White blood cell count decreased [Unknown]
  - Discomfort [Unknown]
  - Vein collapse [Unknown]
  - Product dose omission issue [Unknown]
  - Inappropriate schedule of product administration [Unknown]
  - Treatment failure [Unknown]

NARRATIVE: CASE EVENT DATE: 20201130
